FAERS Safety Report 6146984-5 (Version None)
Quarter: 2009Q2

REPORT INFORMATION
  Report Type: 
  Country: None (occurrence: None)
  Receive Date: 20090407
  Receipt Date: 20090331
  Transmission Date: 20091009
  Serious: Yes (Hospitalization)
  Sender: FDA-Public Use
  Company Number: FR-ABBOTT-09P-056-0565544-00

PATIENT
  Sex: Female

DRUGS (9)
  1. DEPAKENE [Suspect]
     Indication: EPILEPSY
     Route: 048
  2. DI-ANTALVIC [Suspect]
     Indication: PAIN
     Route: 048
     Dates: start: 20090111, end: 20090120
  3. ROCEPHIN [Suspect]
     Indication: RESPIRATORY FAILURE
     Route: 042
     Dates: start: 20090112
  4. DOXYCYCLINE [Suspect]
     Indication: RESPIRATORY FAILURE
     Route: 048
     Dates: start: 20090112
  5. TAMIK [Concomitant]
     Indication: DRUG USE FOR UNKNOWN INDICATION
  6. PREVISCAN [Concomitant]
     Indication: DRUG USE FOR UNKNOWN INDICATION
  7. NORSET [Concomitant]
     Indication: DRUG USE FOR UNKNOWN INDICATION
  8. THERALENE [Concomitant]
     Indication: DRUG USE FOR UNKNOWN INDICATION
  9. XANAX [Concomitant]
     Indication: DRUG USE FOR UNKNOWN INDICATION

REACTIONS (3)
  - BLOOD ALKALINE PHOSPHATASE INCREASED [None]
  - CHOLESTASIS [None]
  - GAMMA-GLUTAMYLTRANSFERASE INCREASED [None]
